FAERS Safety Report 7979065-6 (Version None)
Quarter: 2011Q4

REPORT INFORMATION
  Report Type: 
  Country: None (occurrence: None)
  Receive Date: 20111214
  Receipt Date: 20111209
  Transmission Date: 20120403
  Serious: No
  Sender: FDA-Public Use
  Company Number: US-PFIZER INC-2011301036

PATIENT
  Sex: Female
  Weight: 72.562 kg

DRUGS (5)
  1. MULTI-VITAMINS [Concomitant]
     Dosage: UNK
  2. ACETYLSALICYLIC ACID [Concomitant]
     Dosage: UNK
  3. VASOTEC [Suspect]
     Indication: BLOOD PRESSURE INCREASED
     Dosage: 10 MG, 2X/DAY
     Route: 048
     Dates: start: 19810101
  4. LIPITOR [Suspect]
     Indication: BLOOD PRESSURE INCREASED
     Dosage: 10 MG, UNK
  5. CALCIUM [Concomitant]
     Dosage: UNK

REACTIONS (3)
  - BLOOD PRESSURE INCREASED [None]
  - NIGHTMARE [None]
  - CONFUSIONAL STATE [None]
